FAERS Safety Report 7152810-8 (Version None)
Quarter: 2010Q4

REPORT INFORMATION
  Report Type: 
  Country: None (occurrence: None)
  Receive Date: 20101213
  Receipt Date: 20101130
  Transmission Date: 20110411
  Serious: Yes (Hospitalization, Other)
  Sender: FDA-Public Use
  Company Number: PHHY2010FR82234

PATIENT
  Age: 69 Year
  Sex: Female

DRUGS (5)
  1. TASIGNA [Suspect]
     Indication: CHRONIC MYELOID LEUKAEMIA
     Dosage: 200 MG, BID
     Route: 048
     Dates: start: 20100823, end: 20101023
  2. ZANIDIP [Concomitant]
     Dosage: UNK
     Dates: end: 20101023
  3. COVERSYL [Concomitant]
  4. KARDEGIC [Concomitant]
  5. FLECAINIDE ACETATE [Concomitant]

REACTIONS (4)
  - CHOLELITHIASIS [None]
  - NITRITE URINE PRESENT [None]
  - PANCREATITIS [None]
  - WHITE BLOOD CELLS URINE POSITIVE [None]
